FAERS Safety Report 9471254 (Version 1)
Quarter: 2013Q3

REPORT INFORMATION
  Report Type: Spontaneous
  Country: GB (occurrence: GB)
  Receive Date: 20130822
  Receipt Date: 20130822
  Transmission Date: 20140515
  Serious: Yes (Hospitalization)
  Sender: FDA-Public Use
  Company Number: GB-TEVA-426600ISR

PATIENT
  Age: 49 Year
  Sex: Male

DRUGS (9)
  1. CITALOPRAM [Suspect]
  2. OMEPRAZOLE [Suspect]
  3. METFORMIN [Suspect]
  4. ATORVASTATIN [Suspect]
  5. ASPIRIN [Suspect]
  6. ZAPONEX [Suspect]
     Route: 048
  7. ZAPONEX [Suspect]
     Route: 048
     Dates: start: 20110802, end: 201307
  8. AMISULPRIDE [Suspect]
  9. ACAMPROSATE [Suspect]

REACTIONS (3)
  - Overdose [Recovered/Resolved with Sequelae]
  - Cardiovascular disorder [Unknown]
  - Hypoventilation [Recovering/Resolving]
